FAERS Safety Report 16321770 (Version 4)
Quarter: 2019Q3

REPORT INFORMATION
  Report Type: Report from Study
  Country: JP (occurrence: JP)
  Receive Date: 20190516
  Receipt Date: 20190802
  Transmission Date: 20191004
  Serious: Yes (Hospitalization)
  Sender: FDA-Public Use
  Company Number: JP-EISAI MEDICAL RESEARCH-EC-2019-056397

PATIENT
  Age: 69 Year
  Sex: Female
  Weight: 58 kg

DRUGS (6)
  1. ERIBULIN [Suspect]
     Active Substance: ERIBULIN
     Indication: ADENOID CYSTIC CARCINOMA
     Route: 041
     Dates: start: 20181211, end: 20190424
  2. THYRADIN S [Concomitant]
     Active Substance: LEVOTHYROXINE SODIUM
  3. RANMARK [Concomitant]
     Active Substance: DENOSUMAB
  4. SODIUM PICOSULFATE HTDRATE [Concomitant]
  5. DENOTAS [Concomitant]
     Active Substance: CALCIUM CARBONATE\CHOLECALCIFEROL\MAGNESIUM CARBONATE
  6. G-LASTA [Concomitant]
     Active Substance: PEGFILGRASTIM

REACTIONS (1)
  - Lung infection [Recovered/Resolved]

NARRATIVE: CASE EVENT DATE: 20190507
